FAERS Safety Report 6864746-8 (Version None)
Quarter: 2010Q3

REPORT INFORMATION
  Report Type: 
  Country: None (occurrence: None)
  Receive Date: 20100721
  Receipt Date: 20080402
  Transmission Date: 20110219
  Serious: No
  Sender: FDA-Public Use
  Company Number: US-PFIZER INC-2008030785

PATIENT
  Sex: Male
  Weight: 79.1 kg

DRUGS (6)
  1. CHANTIX [Suspect]
     Indication: SMOKING CESSATION THERAPY
     Route: 048
     Dates: start: 20080101, end: 20080330
  2. TRAZODONE HYDROCHLORIDE [Concomitant]
  3. FENTANYL [Concomitant]
  4. PERCOCET [Concomitant]
  5. OMEPRAZOLE [Concomitant]
  6. COMPAZINE [Concomitant]

REACTIONS (3)
  - ABNORMAL DREAMS [None]
  - DIZZINESS [None]
  - DYSGEUSIA [None]
